FAERS Safety Report 8121299-4 (Version None)
Quarter: 2011Q4

REPORT INFORMATION
  Report Type: 
  Country: None (occurrence: None)
  Receive Date: 20111227
  Receipt Date: 20111114
  Transmission Date: 20120403
  Serious: No
  Sender: FDA-Public Use
  Company Number: PHEH2011US008858

PATIENT
  Age: 49 Year
  Sex: Female

DRUGS (11)
  1. CLARITIN [Concomitant]
  2. GILENYA [Suspect]
     Indication: MULTIPLE SCLEROSIS
     Dosage: 0.5 MG, QD, ORAL
     Route: 048
     Dates: start: 20111026
  3. ALTACE [Concomitant]
  4. IBUPROFEN [Concomitant]
  5. PREMARIN [Concomitant]
  6. TEGRETOL [Concomitant]
  7. BACLOFEN [Concomitant]
  8. DETROL [Concomitant]
  9. NEURONTIN [Concomitant]
  10. PRILOSEC [Concomitant]
  11. AMBIEN [Concomitant]

REACTIONS (2)
  - GAIT DISTURBANCE [None]
  - MUSCULOSKELETAL STIFFNESS [None]
